FAERS Safety Report 7415299-7 (Version None)
Quarter: 2011Q2

REPORT INFORMATION
  Report Type: 
  Country: None (occurrence: None)
  Receive Date: 20110414
  Receipt Date: 20110412
  Transmission Date: 20111010
  Serious: Yes (Hospitalization)
  Sender: FDA-Public Use
  Company Number: PHHO2011US05559

PATIENT
  Sex: Female
  Weight: 56.6 kg

DRUGS (3)
  1. TASIGNA [Suspect]
     Dosage: 200 MG, BID
     Route: 048
     Dates: start: 20110308, end: 20110314
  2. LOESTRIN FE 1/20 [Concomitant]
     Indication: CONTRACEPTION
     Dosage: ONCE DAILY
     Route: 048
     Dates: start: 20110301
  3. TASIGNA [Suspect]
     Indication: SYSTEMIC SCLEROSIS
     Dosage: 200 MG, QD
     Route: 048
     Dates: start: 20110228, end: 20110307

REACTIONS (2)
  - NEOPLASM MALIGNANT [None]
  - SYNCOPE [None]
